FAERS Safety Report 14974293 (Version 1)
Quarter: 2018Q2

REPORT INFORMATION
  Report Type: Spontaneous
  Country: SG (occurrence: SG)
  Receive Date: 20180605
  Receipt Date: 20180605
  Transmission Date: 20180711
  Serious: Yes (Other)
  Sender: FDA-Public Use
  Company Number: SG-MYLANLABS-2018M1037346

PATIENT
  Age: 63 Year
  Sex: Male

DRUGS (3)
  1. POLYMYXIN B. [Suspect]
     Active Substance: POLYMYXIN B
     Indication: KLEBSIELLA INFECTION
     Dosage: INITIALLY GIVEN IN COMBINATION WITH MEROPENEM, LATER GIVEN IN COMBINATION WITH TIGECYCLINE
     Route: 042
     Dates: start: 2017
  2. MEROPENEM. [Concomitant]
     Active Substance: MEROPENEM
     Indication: KLEBSIELLA INFECTION
     Dosage: GIVEN IN COMBINATION WITH POLYMYXIN B
     Route: 042
     Dates: start: 2017
  3. TIGECYCLINE. [Concomitant]
     Active Substance: TIGECYCLINE
     Indication: KLEBSIELLA INFECTION
     Dosage: GIVEN IN COMBINATION WITH POLYMYXIN B
     Route: 042
     Dates: start: 2017

REACTIONS (1)
  - Drug resistance [Unknown]

NARRATIVE: CASE EVENT DATE: 2017
